FAERS Safety Report 7325591-2 (Version None)
Quarter: 2011Q1

REPORT INFORMATION
  Report Type: 
  Country: None (occurrence: None)
  Receive Date: 20110302
  Receipt Date: 20110218
  Transmission Date: 20110831
  Serious: Yes (Other)
  Sender: FDA-Public Use
  Company Number: US-PFIZER INC-US-WYE-H05897308

PATIENT
  Sex: Female
  Weight: 124.7 kg

DRUGS (7)
  1. ADVIL LIQUI-GELS [Suspect]
     Indication: PAIN
     Dosage: UNKNOWN
     Route: 048
     Dates: start: 20080701, end: 20080710
  2. ZOCOR [Concomitant]
     Route: 065
  3. LYRICA [Suspect]
     Indication: NEURALGIA
     Dosage: 50 MG, 1X/DAY
     Route: 048
     Dates: start: 20080709, end: 20080719
  4. METHOCARBAMOL [Suspect]
     Indication: PAIN
     Dosage: UNK
     Route: 048
     Dates: start: 20080701, end: 20080710
  5. HYDROCHLOROTHIAZIDE [Concomitant]
     Route: 065
  6. AVANDAMET [Concomitant]
     Route: 065
  7. POTASSIUM CHLORIDE [Concomitant]
     Route: 065

REACTIONS (6)
  - BLOOD PRESSURE INCREASED [None]
  - SOMNOLENCE [None]
  - BLOOD GLUCOSE INCREASED [None]
  - THINKING ABNORMAL [None]
  - DRUG INTERACTION [None]
  - OEDEMA PERIPHERAL [None]
